FAERS Safety Report 14162762 (Version 1)
Quarter: 2017Q4

REPORT INFORMATION
  Report Type: Report from Study
  Country: None (occurrence: US)
  Receive Date: 20171106
  Receipt Date: 20171106
  Transmission Date: 20180321
  Serious: Yes (Other)
  Sender: FDA-Public Use
  Company Number: US-ABBVIE-17K-163-2149179-00

PATIENT
  Age: 75 Year
  Sex: Female

DRUGS (1)
  1. HUMIRA [Suspect]
     Active Substance: ADALIMUMAB
     Indication: PRODUCT USED FOR UNKNOWN INDICATION
     Route: 058

REACTIONS (8)
  - Catheterisation cardiac [Recovered/Resolved]
  - Pulmonary mass [Unknown]
  - Epidural injection [Recovered/Resolved]
  - Influenza [Unknown]
  - Epidural injection [Recovered/Resolved]
  - Hypersensitivity [Unknown]
  - Malaise [Unknown]
  - Hip surgery [Unknown]

NARRATIVE: CASE EVENT DATE: 201204
